FAERS Safety Report 9839587 (Version 2)
Quarter: 2014Q1

REPORT INFORMATION
  Report Type: Spontaneous
  Country: US (occurrence: US)
  Receive Date: 20140124
  Receipt Date: 20140212
  Transmission Date: 20141002
  Serious: Yes (Other)
  Sender: FDA-Public Use
  Company Number: US-009507513-1401USA010146

PATIENT
  Age: 48 Year
  Sex: Female

DRUGS (1)
  1. LIPTRUZET [Suspect]
     Route: 048

REACTIONS (1)
  - Renal failure [Unknown]
